FAERS Safety Report 8178926-5 (Version None)
Quarter: 2012Q1

REPORT INFORMATION
  Report Type: 
  Country: None (occurrence: None)
  Receive Date: 20120302
  Receipt Date: 20120222
  Transmission Date: 20120608
  Serious: No
  Sender: FDA-Public Use
  Company Number: US-BIOGENIDEC-2012BI006816

PATIENT
  Sex: Female

DRUGS (2)
  1. TYSABRI [Suspect]
     Indication: MULTIPLE SCLEROSIS
     Route: 042
     Dates: start: 20081204
  2. IBUPROFEN TABLETS [Concomitant]
     Indication: HEADACHE

REACTIONS (8)
  - CONTUSION [None]
  - FALL [None]
  - JOINT SWELLING [None]
  - DERMATITIS [None]
  - INFUSION SITE PAIN [None]
  - SUBCUTANEOUS NODULE [None]
  - INFUSION SITE PARAESTHESIA [None]
  - VEIN DISORDER [None]
